FAERS Safety Report 5292726-5 (Version None)
Quarter: 2007Q2

REPORT INFORMATION
  Report Type: 
  Country: None (occurrence: None)
  Receive Date: 20070404
  Receipt Date: 20070328
  Transmission Date: 20071010
  Serious: Yes (Hospitalization)
  Sender: FDA-Public Use
  Company Number: 2007BI006901

PATIENT

DRUGS (3)
  1. ZEVALIN [Suspect]
     Dosage: 1X; IV
     Route: 042
  2. ZEVALIN [Suspect]
  3. RITUXIMAB [Concomitant]

REACTIONS (1)
  - DISEASE PROGRESSION [None]
